FAERS Safety Report 21567767 (Version 1)
Quarter: 2022Q4

REPORT INFORMATION
  Report Type: Report from Study
  Country: US (occurrence: US)
  Receive Date: 20221108
  Receipt Date: 20221108
  Transmission Date: 20230113
  Serious: Yes (Other)
  Sender: FDA-Public Use
  Company Number: US-002147023-NVSC2022US249831

PATIENT
  Age: 12 Year
  Sex: Female
  Weight: 38 kg

DRUGS (2)
  1. OMNITROPE [Suspect]
     Active Substance: SOMATROPIN
     Indication: Short stature
     Dosage: 0.35 MG, QD (5 MG/ML)
     Route: 058
     Dates: start: 20220426
  2. OMNITROPE [Suspect]
     Active Substance: SOMATROPIN
     Dosage: 2 MG, QD (5.8 MG)
     Route: 058
     Dates: start: 20220427, end: 20220923

REACTIONS (2)
  - Carpal tunnel syndrome [Recovered/Resolved]
  - Product packaging quantity issue [Unknown]

NARRATIVE: CASE EVENT DATE: 20220505
